FAERS Safety Report 4393428-X (Version None)
Quarter: 2004Q3

REPORT INFORMATION
  Report Type: 
  Country: None (occurrence: None)
  Receive Date: 20040701
  Receipt Date: 20040621
  Transmission Date: 20050211
  Serious: Yes (Other)
  Sender: FDA-Public Use
  Company Number: 2004219904ZA

PATIENT
  Sex: Male

DRUGS (2)
  1. ADRIBLASTINA CSV(DOXORUBICIN HYDROCHLORIDE) SOLUTION, STERILE [Suspect]
  2. VINCRISTINE [Concomitant]

REACTIONS (3)
  - AGGRESSION [None]
  - COMPLEX PARTIAL SEIZURES [None]
  - CONFUSIONAL STATE [None]
